FAERS Safety Report 20330611 (Version 2)
Quarter: 2023Q2

REPORT INFORMATION
  Report Type: Report from Study
  Country: AU (occurrence: AU)
  Receive Date: 20220113
  Receipt Date: 20230514
  Transmission Date: 20230721
  Serious: Yes (Other)
  Sender: FDA-Public Use
  Company Number: AU-JNJFOC-20220105959

PATIENT
  Age: 62 Year
  Sex: Male

DRUGS (1)
  1. SIMPONI [Suspect]
     Active Substance: GOLIMUMAB
     Indication: Rheumatoid arthritis
     Route: 058
     Dates: end: 202303

REACTIONS (3)
  - Haemorrhage [Recovering/Resolving]
  - Venous injury [Recovered/Resolved]
  - Contusion [Recovering/Resolving]
